FAERS Safety Report 4287169-7 (Version None)
Quarter: 2004Q1

REPORT INFORMATION
  Report Type: 
  Country: None (occurrence: None)
  Receive Date: 20040121
  Receipt Date: 20030605
  Transmission Date: 20041129
  Serious: Yes (Hospitalization)
  Sender: FDA-Public Use
  Company Number: 03P-163-0220732-00

PATIENT
  Age: 78 Year
  Sex: Male
  Weight: 97 kg

DRUGS (7)
  1. RYTHMOL [Suspect]
     Indication: SINUS ARRHYTHMIA
     Dates: start: 20030416
  2. ATORVASTATIN [Suspect]
     Indication: CORONARY ARTERY DISEASE
     Dosage: 10 MG OR 80MG,  1 IN 1 D, PER ORAL
     Route: 048
     Dates: start: 19980902, end: 19981105
  3. ATORVASTATIN [Suspect]
     Indication: CORONARY ARTERY DISEASE
     Dosage: 10 MG OR 80MG,  1 IN 1 D, PER ORAL
     Route: 048
     Dates: start: 19981106
  4. ACETYLSALICYLIC ACID SRT [Concomitant]
  5. ASCORBIC ACID [Concomitant]
  6. TOCOPHEROL CONCENTRATE CAP [Concomitant]
  7. CAPTOPRIL [Concomitant]

REACTIONS (5)
  - ATRIAL TACHYCARDIA [None]
  - CONDITION AGGRAVATED [None]
  - DYSPNOEA [None]
  - FATIGUE [None]
  - SICK SINUS SYNDROME [None]
